FAERS Safety Report 21241544 (Version 1)
Quarter: 2022Q3

REPORT INFORMATION
  Report Type: Spontaneous
  Country: CA (occurrence: CA)
  Receive Date: 20220823
  Receipt Date: 20220823
  Transmission Date: 20221027
  Serious: Yes (Hospitalization)
  Sender: FDA-Public Use
  Company Number: CA-TEVA-2022-CA-2066122

PATIENT
  Age: 39 Year
  Sex: Female
  Weight: 115 kg

DRUGS (17)
  1. AMIODARONE [Interacting]
     Active Substance: AMIODARONE
     Indication: Tachycardia
     Dosage: 200 MILLIGRAM DAILY;
     Route: 048
  2. AMIODARONE [Interacting]
     Active Substance: AMIODARONE
     Indication: Atrial fibrillation
     Dosage: 400 MILLIGRAM DAILY;
     Route: 048
  3. AMIODARONE [Interacting]
     Active Substance: AMIODARONE
     Dosage: 800 MILLIGRAM DAILY;  THERAPY DURATION : 5.0 DAYS
     Route: 048
  4. AMIODARONE [Interacting]
     Active Substance: AMIODARONE
     Dosage: 400 MILLIGRAM DAILY;
     Route: 048
  5. AMIODARONE [Interacting]
     Active Substance: AMIODARONE
     Dosage: 100 MILLIGRAM DAILY;
     Route: 048
  6. CARBAMAZEPINE [Interacting]
     Active Substance: CARBAMAZEPINE
     Indication: Epilepsy
     Dosage: 1200 MILLIGRAM DAILY;
     Route: 048
  7. AMIODARONE [Suspect]
     Active Substance: AMIODARONE
     Indication: Tachycardia
     Route: 042
  8. AMIODARONE [Suspect]
     Active Substance: AMIODARONE
     Indication: Atrial fibrillation
     Route: 042
  9. APIXABAN [Suspect]
     Active Substance: APIXABAN
     Indication: Anticoagulant therapy
     Dosage: 15 MILLIGRAM DAILY;
     Route: 065
  10. APIXABAN [Suspect]
     Active Substance: APIXABAN
     Dosage: 12.5 MILLIGRAM DAILY;  THERAPY DURATION :88.0 DAYS
     Route: 065
  11. APIXABAN [Suspect]
     Active Substance: APIXABAN
     Dosage: 10 MILLIGRAM DAILY;  THERAPY DURATION : 8.0 DAYS
     Route: 065
  12. APIXABAN [Suspect]
     Active Substance: APIXABAN
     Dosage: 20 MILLIGRAM DAILY;  THERAPY DURATION : 5.0 DAYS
     Route: 065
  13. TOCILIZUMAB [Suspect]
     Active Substance: TOCILIZUMAB
     Indication: COVID-19 pneumonia
     Route: 042
  14. DEXAMETHASONE [Concomitant]
     Active Substance: DEXAMETHASONE
     Indication: Anticoagulant therapy
     Dosage: 6 MILLIGRAM DAILY;  THERAPY DURATION :10.0 DAYS
     Route: 048
  15. ENOXAPARIN [Concomitant]
     Active Substance: ENOXAPARIN
     Indication: Tachycardia
     Dosage: 240 MILLIGRAM DAILY;  THERAPY DURATION :96.0 DAYS
     Route: 065
  16. ENOXAPARIN [Concomitant]
     Active Substance: ENOXAPARIN
     Indication: Atrial fibrillation
  17. LAMOTRIGINE [Concomitant]
     Active Substance: LAMOTRIGINE
     Indication: Epilepsy
     Dosage: 200 MILLIGRAM DAILY;
     Route: 048

REACTIONS (2)
  - Drug level changed [Unknown]
  - Drug interaction [Unknown]
